FAERS Safety Report 12511221 (Version 1)
Quarter: 2016Q2

REPORT INFORMATION
  Report Type: Spontaneous
  Country: ES (occurrence: ES)
  Receive Date: 20160629
  Receipt Date: 20160629
  Transmission Date: 20160815
  Serious: Yes (Other)
  Sender: FDA-Public Use
  Company Number: ES-TEVA-670419ISR

PATIENT
  Age: 75 Year
  Sex: Male

DRUGS (5)
  1. SILDENAFILO RATIOPHARM 50 MG [Suspect]
     Active Substance: SILDENAFIL CITRATE
     Dosage: 25 MILLIGRAM DAILY; 25 MG DAILY, HALF TABLET
     Route: 048
     Dates: start: 20160430
  2. METFORMIN [Concomitant]
     Active Substance: METFORMIN HYDROCHLORIDE
  3. UROLOSIN [Concomitant]
     Active Substance: TAMSULOSIN HYDROCHLORIDE
  4. OMEPRAZOL [Concomitant]
     Active Substance: OMEPRAZOLE
  5. CRESTOR [Concomitant]
     Active Substance: ROSUVASTATIN CALCIUM

REACTIONS (2)
  - Facial paralysis [Recovered/Resolved]
  - Paralysis [Recovered/Resolved]

NARRATIVE: CASE EVENT DATE: 20160430
